FAERS Safety Report 7659978-5 (Version None)
Quarter: 2011Q3

REPORT INFORMATION
  Report Type: 
  Country: None (occurrence: None)
  Receive Date: 20110805
  Receipt Date: 20110804
  Transmission Date: 20111222
  Serious: Yes (Hospitalization, Other)
  Sender: FDA-Public Use
  Company Number: BE-ABBOTT-11P-013-0844021-00

PATIENT
  Age: 38 Year
  Sex: Male

DRUGS (1)
  1. HUMIRA [Suspect]
     Indication: CROHN'S DISEASE
     Dates: start: 20110401

REACTIONS (8)
  - MOBILITY DECREASED [None]
  - PARAESTHESIA [None]
  - MONOPLEGIA [None]
  - CHEST PAIN [None]
  - MALAISE [None]
  - INFLAMMATION [None]
  - ADVERSE DRUG REACTION [None]
  - PNEUMONIA [None]
